FAERS Safety Report 11780649 (Version 1)
Quarter: 2015Q4

REPORT INFORMATION
  Report Type: Spontaneous
  Country: US (occurrence: US)
  Receive Date: 20151126
  Receipt Date: 20151126
  Transmission Date: 20160305
  Serious: No
  Sender: FDA-Public Use
  Company Number: US-009507513-1511USA014175

PATIENT
  Age: 15 Year
  Sex: Female
  Weight: 72.11 kg

DRUGS (1)
  1. NEXPLANON [Suspect]
     Active Substance: ETONOGESTREL
     Indication: CONTRACEPTION
     Dosage: 1 ROD/ 3 YEARS, INSSERTED LEFT ARM
     Route: 059
     Dates: start: 20151007

REACTIONS (3)
  - Vomiting [Unknown]
  - Nausea [Unknown]
  - Acne [Unknown]

NARRATIVE: CASE EVENT DATE: 2015
